FAERS Safety Report 24453683 (Version 2)
Quarter: 2024Q4

REPORT INFORMATION
  Report Type: Report from Study
  Country: US (occurrence: US)
  Receive Date: 20241017
  Receipt Date: 20241018
  Transmission Date: 20250115
  Serious: No
  Sender: ROCHE
  Company Number: US-ROCHE-3379003

PATIENT
  Age: 63 Year
  Sex: Male

DRUGS (14)
  1. RITUXAN [Suspect]
     Active Substance: RITUXIMAB
     Indication: Nephrotic syndrome
     Dosage: 2 DOSE, DAY 1 AND 2ND DOSE AT 1 MONTH AND LATER EVERY 6 MONTHS. 3 DOSES TOTAL.
     Route: 042
     Dates: start: 20230322
  2. RITUXAN [Suspect]
     Active Substance: RITUXIMAB
     Indication: Osteonecrosis
  3. RITUXAN [Suspect]
     Active Substance: RITUXIMAB
     Indication: Acute kidney injury
  4. ASPIRIN [Concomitant]
     Active Substance: ASPIRIN
  5. CYCLOSPORINE [Concomitant]
     Active Substance: CYCLOSPORINE
  6. ELIQUIS [Concomitant]
     Active Substance: APIXABAN
  7. LANCET [Concomitant]
  8. GABAPENTIN [Concomitant]
     Active Substance: GABAPENTIN
  9. GLYBURIDE [Concomitant]
     Active Substance: GLYBURIDE
  10. VITAMINS [Concomitant]
     Active Substance: VITAMINS
  11. NIFEDIPINE [Concomitant]
     Active Substance: NIFEDIPINE
  12. PANTOPRAZOLE [Concomitant]
     Active Substance: PANTOPRAZOLE
  13. PREDNISONE [Concomitant]
     Active Substance: PREDNISONE
  14. WARFARIN SODIUM [Concomitant]
     Active Substance: WARFARIN SODIUM

REACTIONS (2)
  - Off label use [Unknown]
  - No adverse event [Unknown]
